FAERS Safety Report 5205507-5 (Version None)
Quarter: 2006Q4

REPORT INFORMATION
  Report Type: 
  Country: None (occurrence: None)
  Receive Date: 20061027
  Receipt Date: 20060616
  Transmission Date: 20070319
  Serious: Yes (Other)
  Sender: FDA-Public Use
  Company Number: HQWYE281320JUN06

PATIENT
  Age: 89 Year
  Sex: Female

DRUGS (3)
  1. PREMARIN [Suspect]
     Dosage: 0.625 MG 4X PER 1 WK, ORAL
     Route: 048
     Dates: start: 19650101, end: 20060614
  2. LASIX [Concomitant]
  3. TENORMIN [Concomitant]

REACTIONS (4)
  - ASTHENIA [None]
  - HEART RATE INCREASED [None]
  - HYPERSENSITIVITY [None]
  - UNEVALUABLE EVENT [None]
